FAERS Safety Report 9449319 (Version 1)
Quarter: 2013Q3

REPORT INFORMATION
  Report Type: Spontaneous
  Country: US (occurrence: US)
  Receive Date: 20130808
  Receipt Date: 20130808
  Transmission Date: 20140515
  Serious: Yes (Other)
  Sender: FDA-Public Use
  Company Number: US-TEVA-423727USA

PATIENT
  Age: 42 Year
  Sex: Female
  Weight: 76.27 kg

DRUGS (3)
  1. PARAGARD 380A [Suspect]
     Indication: CONTRACEPTION
     Route: 015
     Dates: start: 20130705
  2. LOTREL [Concomitant]
     Indication: HYPERTENSION
  3. PROVENTIL [Concomitant]
     Indication: ASTHMA

REACTIONS (1)
  - Device dislocation [Not Recovered/Not Resolved]
